FAERS Safety Report 10168694 (Version 1)
Quarter: 2014Q2

REPORT INFORMATION
  Report Type: Spontaneous
  Country: US (occurrence: None)
  Receive Date: 20140512
  Receipt Date: 20140512
  Transmission Date: 20141212
  Serious: No
  Sender: FDA-Public Use
  Company Number: None

PATIENT
  Age: 36 Year
  Sex: Female
  Weight: 75.75 kg

DRUGS (1)
  1. ADDERALL [Suspect]
     Indication: SOMNOLENCE
     Route: 048
     Dates: start: 20140201

REACTIONS (3)
  - Drug ineffective [None]
  - Product substitution issue [None]
  - Fatigue [None]
